FAERS Safety Report 18409556 (Version 1)
Quarter: 2020Q4

REPORT INFORMATION
  Report Type: Spontaneous
  Country: GB (occurrence: GB)
  Receive Date: 20201021
  Receipt Date: 20201021
  Transmission Date: 20210114
  Serious: Yes (Death, Hospitalization, Other)
  Sender: FDA-Public Use
  Company Number: NVSC2020GB205151

PATIENT
  Age: 50 Year
  Sex: Female
  Weight: 69.7 kg

DRUGS (12)
  1. CLOPIDROGEL SANDOZ [Concomitant]
     Active Substance: CLOPIDOGREL BISULFATE
     Indication: HYPERTENSION
     Dosage: 75 MG, QD
     Route: 065
     Dates: start: 201906
  2. METFORMIN [Concomitant]
     Active Substance: METFORMIN HYDROCHLORIDE
     Indication: DIABETES MELLITUS
     Dosage: UNK (100 MG 2X PER DAY)
     Route: 048
     Dates: start: 2004
  3. CALCIDEN [Concomitant]
     Indication: HYPERCALCAEMIA
     Dosage: 3 DF, QD
     Route: 065
     Dates: start: 20191205
  4. LANSOPRAZOL [Concomitant]
     Active Substance: LANSOPRAZOLE
     Indication: DYSPEPSIA
     Dosage: 30 MG
     Route: 065
     Dates: start: 201910
  5. CYCLIZINE [Concomitant]
     Active Substance: CYCLIZINE
     Indication: NAUSEA
     Dosage: 50 MG, PRN
     Route: 065
     Dates: start: 20191107
  6. GABAPENTIN. [Concomitant]
     Active Substance: GABAPENTIN
     Indication: BACK PAIN
     Dosage: UNK (200 MG 3X A DAY)
     Route: 048
     Dates: start: 201906
  7. RAMIPRIL. [Concomitant]
     Active Substance: RAMIPRIL
     Indication: HYPERTENSION
     Dosage: 10 MG (EVERY NIGHT)
     Route: 048
     Dates: start: 2013
  8. CETRIZINE [Concomitant]
     Active Substance: CETIRIZINE HYDROCHLORIDE
     Indication: ECZEMA
     Dosage: 10 MG, PRN (START NOT KNOWN BUT PRIOR TO TREATMENT)
     Route: 065
  9. METOCLOPRAMID [Concomitant]
     Active Substance: METOCLOPRAMIDE
     Indication: NAUSEA
     Dosage: 10 MG, PRN
     Route: 065
     Dates: start: 20191219
  10. METOCLOPRAMID [Concomitant]
     Active Substance: METOCLOPRAMIDE
     Indication: VOMITING
  11. RIBOCICLIB. [Suspect]
     Active Substance: RIBOCICLIB
     Indication: PRODUCT USED FOR UNKNOWN INDICATION
     Dosage: UNK
     Route: 065
  12. COCODAMOL [Concomitant]
     Active Substance: ACETAMINOPHEN\CODEINE PHOSPHATE
     Indication: ABDOMINAL PAIN
     Dosage: 2 DF, PRN (30/500)
     Route: 065
     Dates: start: 20191201

REACTIONS (5)
  - Jaundice [Unknown]
  - Liver disorder [Fatal]
  - Metastases to liver [Unknown]
  - Hepatotoxicity [Fatal]
  - Disease progression [Fatal]

NARRATIVE: CASE EVENT DATE: 20191218
